FAERS Safety Report 5258498-5 (Version None)
Quarter: 2007Q1

REPORT INFORMATION
  Report Type: 
  Country: None (occurrence: None)
  Receive Date: 20070308
  Receipt Date: 20070226
  Transmission Date: 20070707
  Serious: Yes (Hospitalization)
  Sender: FDA-Public Use
  Company Number: FR-BAYER-200611198BFR

PATIENT
  Age: 8 Year
  Sex: Male

DRUGS (7)
  1. CIPROFLOXACIN [Suspect]
     Indication: PYREXIA
     Route: 065
  2. FORTUM [Suspect]
     Indication: PYREXIA
     Route: 042
  3. TAZOCILLINE [Suspect]
     Indication: PYREXIA
     Route: 042
  4. ZYVOX [Suspect]
     Indication: PYREXIA
     Route: 065
  5. AMIKACIN [Suspect]
     Indication: PYREXIA
     Route: 042
  6. VANCOMYCIN [Suspect]
     Indication: PYREXIA
     Route: 042
  7. TIENAM [Concomitant]
     Indication: PYREXIA

REACTIONS (5)
  - DRUG ERUPTION [None]
  - HAEMATURIA [None]
  - PYREXIA [None]
  - SERUM SICKNESS [None]
  - URTICARIA PAPULAR [None]
